FAERS Safety Report 25597712 (Version 2)
Quarter: 2025Q3

REPORT INFORMATION
  Report Type: Spontaneous
  Country: US (occurrence: US)
  Receive Date: 20250723
  Receipt Date: 20250728
  Transmission Date: 20251020
  Serious: No
  Sender: BAUSCH AND LOMB
  Company Number: US-BAUSCHBL-2025BNL012838

PATIENT
  Sex: Female

DRUGS (3)
  1. OPCON-A [Suspect]
     Active Substance: NAPHAZOLINE HYDROCHLORIDE\PHENIRAMINE MALEATE
     Indication: Ocular hyperaemia
     Route: 047
     Dates: start: 20250719, end: 20250719
  2. OPCON-A [Suspect]
     Active Substance: NAPHAZOLINE HYDROCHLORIDE\PHENIRAMINE MALEATE
     Indication: Eye pruritus
  3. ROHTO COOLING EYE DROPS [Concomitant]
     Indication: Product used for unknown indication
     Route: 047
     Dates: start: 202507, end: 20250719

REACTIONS (3)
  - Condition aggravated [Recovered/Resolved]
  - Eye irritation [Recovered/Resolved]
  - Drug ineffective [Unknown]

NARRATIVE: CASE EVENT DATE: 20250719
